FAERS Safety Report 6883860-4 (Version None)
Quarter: 2010Q3

REPORT INFORMATION
  Report Type: 
  Country: None (occurrence: None)
  Receive Date: 20100729
  Receipt Date: 20100721
  Transmission Date: 20110219
  Serious: Yes (Hospitalization)
  Sender: FDA-Public Use
  Company Number: GB-RB-013431-10

PATIENT
  Age: 39 Year
  Sex: Male

DRUGS (2)
  1. SUBOXONE [Suspect]
     Dosage: DOSAGE DETAILS UNKNOWN
     Route: 065
     Dates: start: 20090101
  2. SUBOXONE [Suspect]
     Indication: DRUG DEPENDENCE
     Dosage: DOSAGE DETAILS UNKNOWN
     Route: 042

REACTIONS (2)
  - DEEP VEIN THROMBOSIS [None]
  - INTENTIONAL DRUG MISUSE [None]
